FAERS Safety Report 7099213-2 (Version None)
Quarter: 2010Q4

REPORT INFORMATION
  Report Type: 
  Country: None (occurrence: None)
  Receive Date: 20101112
  Receipt Date: 20080616
  Transmission Date: 20110411
  Serious: No
  Sender: FDA-Public Use
  Company Number: US-KINGPHARMUSA00001-K200800703

PATIENT
  Sex: Female
  Weight: 52.608 kg

DRUGS (4)
  1. LEVOXYL [Suspect]
     Indication: THYROIDECTOMY
     Dosage: 75 MCG QD, FIVE DAYS/WEEK
     Route: 048
     Dates: start: 20071201
  2. LEVOXYL [Suspect]
     Dosage: 50 MCG, QD, TWO DAYS/WEEK
     Route: 048
     Dates: start: 20071201
  3. VITAMINS [Concomitant]
     Dosage: UNK, UNK
  4. FIBERCON                           /00567702/ [Concomitant]
     Dosage: UNK, UNK

REACTIONS (3)
  - DRY MOUTH [None]
  - DYSGEUSIA [None]
  - PARAESTHESIA [None]
